FAERS Safety Report 24356870 (Version 1)
Quarter: 2024Q3

REPORT INFORMATION
  Report Type: Report from Study
  Country: ZA (occurrence: ZA)
  Receive Date: 20240924
  Receipt Date: 20240924
  Transmission Date: 20241016
  Serious: Yes (Other)
  Sender: NOVARTIS
  Company Number: ZA-002147023-NVSC2024ZA186992

PATIENT
  Age: 80 Year
  Sex: Male

DRUGS (1)
  1. INCLISIRAN [Suspect]
     Active Substance: INCLISIRAN
     Indication: Hyperlipidaemia
     Dosage: 284 MG, ONCE/SINGLE, LOADING DOSE MONTH 0 MONTH 3 AND MONTH 6 MAINTENANCE DOSE: EVERY 6 MONTHS
     Route: 058

REACTIONS (1)
  - Inappropriate schedule of product administration [Unknown]
